FAERS Safety Report 7538783-4 (Version None)
Quarter: 2011Q2

REPORT INFORMATION
  Report Type: 
  Country: None (occurrence: None)
  Receive Date: 20110610
  Receipt Date: 20110120
  Transmission Date: 20111010
  Serious: Yes (Hospitalization, Other)
  Sender: FDA-Public Use
  Company Number: US-BAYER-201036667NA

PATIENT
  Sex: Female
  Weight: 56.689 kg

DRUGS (5)
  1. YAZ [Suspect]
     Indication: PREMENSTRUAL SYNDROME
  2. BACTRIM [Concomitant]
     Dosage: UNK
     Dates: start: 20090724
  3. IBUPROFEN [Concomitant]
     Dosage: UNK
     Dates: start: 20000101, end: 20100101
  4. YAZ [Suspect]
     Indication: ACNE
     Dosage: UNK
     Route: 048
     Dates: start: 20080501, end: 20090101
  5. LEXAPRO [Concomitant]
     Dosage: UNK
     Dates: start: 20090101

REACTIONS (5)
  - DIARRHOEA [None]
  - GALLBLADDER DISORDER [None]
  - PAIN [None]
  - MALAISE [None]
  - CHOLECYSTITIS [None]
